FAERS Safety Report 8487822-5 (Version None)
Quarter: 2012Q2

REPORT INFORMATION
  Report Type: 
  Country: None (occurrence: None)
  Receive Date: 20120402
  Receipt Date: 20101216
  Transmission Date: 20120825
  Serious: Yes (Hospitalization)
  Sender: FDA-Public Use
  Company Number: PHHY2010US86014

PATIENT
  Sex: Male

DRUGS (1)
  1. EXFORGE [Suspect]
     Dosage: 160/5 MG, ORAL
     Route: 048
     Dates: end: 20101204

REACTIONS (3)
  - DRUG DOSE OMISSION [None]
  - LOSS OF CONSCIOUSNESS [None]
  - HYPOTENSION [None]
